FAERS Safety Report 24450029 (Version 2)
Quarter: 2024Q4

REPORT INFORMATION
  Report Type: Spontaneous
  Country: IN (occurrence: IN)
  Receive Date: 20241017
  Receipt Date: 20241103
  Transmission Date: 20250115
  Serious: Yes (Other)
  Sender: JUBILANT
  Company Number: IN-JUBILANT CADISTA PHARMACEUTICALS-2024IN001476

PATIENT
  Age: 36 Year
  Sex: Female

DRUGS (2)
  1. LEVETIRACETAM [Suspect]
     Active Substance: LEVETIRACETAM
     Indication: Partial seizures
     Dosage: 500 MG, 2 TIMES PER DAY
  2. ACENOCOUMAROL [Concomitant]
     Active Substance: ACENOCOUMAROL
     Indication: Cerebral venous thrombosis
     Dosage: UNK, UNK

REACTIONS (5)
  - Parkinsonism [Recovered/Resolved]
  - Gait disturbance [Recovered/Resolved]
  - Reduced facial expression [Recovered/Resolved]
  - Bradykinesia [Recovered/Resolved]
  - Muscle rigidity [Recovered/Resolved]
